FAERS Safety Report 5809846-6 (Version None)
Quarter: 2008Q3

REPORT INFORMATION
  Report Type: 
  Country: None (occurrence: None)
  Receive Date: 20080715
  Receipt Date: 20080707
  Transmission Date: 20090109
  Serious: Yes (Other)
  Sender: FDA-Public Use
  Company Number: FR-AMGEN-US294047

PATIENT
  Age: 50 Year
  Sex: Male

DRUGS (1)
  1. ENBREL [Suspect]
     Indication: PSORIASIS
     Dosage: 50 MG STRENGTH; FREQUENCY UNSPECIFIED
     Route: 058
     Dates: start: 20070101, end: 20080601

REACTIONS (2)
  - AORTIC DILATATION [None]
  - DYSPNOEA [None]
